FAERS Safety Report 18485118 (Version 1)
Quarter: 2020Q4

REPORT INFORMATION
  Report Type: Spontaneous
  Country: US (occurrence: US)
  Receive Date: 20201109
  Receipt Date: 20201109
  Transmission Date: 20210114
  Serious: Yes (Hospitalization)
  Sender: FDA-Public Use
  Company Number: None

PATIENT
  Age: 1 Year
  Sex: Male
  Weight: 7.64 kg

DRUGS (5)
  1. CISPLATIN. [Suspect]
     Active Substance: CISPLATIN
     Dates: end: 20201016
  2. ZINECARD [Suspect]
     Active Substance: DEXRAZOXANE HYDROCHLORIDE
     Dates: end: 20201017
  3. DOXORUBICIN HYDROCHLORIDE. [Suspect]
     Active Substance: DOXORUBICIN HYDROCHLORIDE
     Dates: end: 20201017
  4. 5-FLUOROURACIL (5-FU) [Suspect]
     Active Substance: FLUOROURACIL
     Dates: end: 20201016
  5. VINCRISTINE SULFATE. [Suspect]
     Active Substance: VINCRISTINE SULFATE
     Dates: end: 20201030

REACTIONS (25)
  - Respiratory failure [None]
  - Febrile neutropenia [None]
  - Hypokalaemia [None]
  - Hypertriglyceridaemia [None]
  - Crying [None]
  - Pulmonary oedema [None]
  - Hypotension [None]
  - Platelet count decreased [None]
  - Encephalopathy [None]
  - Decreased appetite [None]
  - Hypoalbuminaemia [None]
  - Pain [None]
  - Asthenia [None]
  - Diarrhoea [None]
  - Skin hyperpigmentation [None]
  - Red man syndrome [None]
  - Vomiting [None]
  - Agitation [None]
  - Irritability [None]
  - Breath holding [None]
  - Septic shock [None]
  - Nausea [None]
  - Acute respiratory failure [None]
  - Anaemia [None]
  - Hypophosphataemia [None]

NARRATIVE: CASE EVENT DATE: 20201031
